FAERS Safety Report 9189229 (Version 1)
Quarter: 2013Q1

REPORT INFORMATION
  Report Type: Spontaneous
  Country: US (occurrence: None)
  Receive Date: 20130321
  Receipt Date: 20130321
  Transmission Date: 20140127
  Serious: No
  Sender: FDA-Public Use
  Company Number: None

PATIENT
  Age: 18 Year
  Sex: Female

DRUGS (1)
  1. ORENCIA 125MG ORENCIA MANUFACTURE [Suspect]
     Indication: RHEUMATOID ARTHRITIS
     Dosage: 125MG QW SQ
     Route: 058
     Dates: start: 20120604, end: 20120823

REACTIONS (2)
  - Pregnancy [None]
  - Exposure during pregnancy [None]
